FAERS Safety Report 22226074 (Version 1)
Quarter: 2023Q2

REPORT INFORMATION
  Report Type: Report from Study
  Country: NL (occurrence: NL)
  Receive Date: 20230419
  Receipt Date: 20230419
  Transmission Date: 20230722
  Serious: Yes (Other)
  Sender: FDA-Public Use
  Company Number: NL-AUROBINDO-AUR-APL-2023-014766

PATIENT

DRUGS (1)
  1. IMATINIB [Suspect]
     Active Substance: IMATINIB
     Indication: Gastrointestinal stromal tumour
     Dosage: 400 MILLIGRAM, ONCE A DAY AS 1ST LINE TREATMENT
     Route: 065

REACTIONS (3)
  - Treatment failure [Unknown]
  - Disease progression [Unknown]
  - Drug ineffective [Unknown]
